FAERS Safety Report 24033960 (Version 1)
Quarter: 2024Q3

REPORT INFORMATION
  Report Type: Spontaneous
  Country: US (occurrence: US)
  Receive Date: 20240701
  Receipt Date: 20240701
  Transmission Date: 20241017
  Serious: No
  Sender: SANOFI AVENTIS
  Company Number: US-SA-SAC20240626000326

PATIENT
  Sex: Male

DRUGS (2)
  1. ALPROLIX [Suspect]
     Active Substance: EFTRENONACOG ALFA
     Dosage: 2900 IU, PRN
     Route: 042
  2. ALPROLIX [Suspect]
     Active Substance: EFTRENONACOG ALFA
     Dosage: 2900 IU, PRN
     Route: 042

REACTIONS (1)
  - Haemorrhage [Unknown]
